FAERS Safety Report 13349148 (Version 1)
Quarter: 2017Q1

REPORT INFORMATION
  Report Type: Report from Study
  Country: US (occurrence: US)
  Receive Date: 20170320
  Receipt Date: 20170320
  Transmission Date: 20170428
  Serious: No
  Sender: FDA-Public Use
  Company Number: US-ALEXION PHARMACEUTICALS INC.-A201702644

PATIENT
  Sex: Male

DRUGS (1)
  1. SOLIRIS [Suspect]
     Active Substance: ECULIZUMAB
     Indication: HAEMOLYTIC URAEMIC SYNDROME
     Dosage: 1200 MG, Q2W
     Route: 042
     Dates: start: 20170210, end: 20170310

REACTIONS (15)
  - Blood potassium decreased [Unknown]
  - Red cell distribution width increased [Unknown]
  - Haemoglobin abnormal [Unknown]
  - Red blood cell count decreased [Unknown]
  - Blood calcium decreased [Unknown]
  - Blood chloride decreased [Unknown]
  - Blood urea nitrogen/creatinine ratio decreased [Unknown]
  - Carbon dioxide increased [Unknown]
  - Reticulocyte count increased [Unknown]
  - Haematocrit decreased [Unknown]
  - Platelet count decreased [Unknown]
  - Blood sodium decreased [Unknown]
  - Blood bicarbonate increased [Unknown]
  - Glomerular filtration rate decreased [Unknown]
  - Blood erythropoietin increased [Unknown]

NARRATIVE: CASE EVENT DATE: 20170222
